FAERS Safety Report 7514805-1 (Version None)
Quarter: 2011Q2

REPORT INFORMATION
  Report Type: 
  Country: None (occurrence: None)
  Receive Date: 20110422
  Receipt Date: 20100506
  Transmission Date: 20111010
  Serious: Yes (Hospitalization, Other)
  Sender: FDA-Public Use
  Company Number: WAES 1005USA00642

PATIENT
  Age: 16 Year
  Sex: Male

DRUGS (4)
  1. ZYRTEC [Suspect]
  2. ASMANEX TWISTHALER [Suspect]
  3. SINGULAIR [Suspect]
     Indication: HYPERSENSITIVITY
     Dosage: PO
     Route: 048
  4. SINGULAIR [Suspect]
     Indication: ASTHMA
     Dosage: PO
     Route: 048

REACTIONS (1)
  - DEPRESSION [None]
